FAERS Safety Report 7070256-8 (Version None)
Quarter: 2010Q4

REPORT INFORMATION
  Report Type: 
  Country: None (occurrence: None)
  Receive Date: 20101028
  Receipt Date: 20100907
  Transmission Date: 20110411
  Serious: Yes (Hospitalization)
  Sender: FDA-Public Use
  Company Number: US-WYE-H17699010

PATIENT
  Age: 73 Year
  Sex: Male

DRUGS (6)
  1. AMIODARONE [Suspect]
     Indication: VENTRICULAR TACHYCARDIA
     Dosage: DOSE AND FREQUENCY NOT SPECIFIED
     Route: 065
  2. AMIODARONE [Interacting]
     Dosage: DOSE AND FREQUENCY NOT SPECIFIED
  3. CORTICOSTEROID NOS [Concomitant]
  4. PROPOFOL [Concomitant]
  5. LEVOFLOXACIN [Interacting]
     Dosage: DOSE AND FREQUENCY NOT SPECIFIED
     Route: 065
  6. CARVEDILOL [Concomitant]

REACTIONS (3)
  - DRUG INTERACTION [None]
  - ELECTROCARDIOGRAM QT PROLONGED [None]
  - TORSADE DE POINTES [None]
